FAERS Safety Report 18490265 (Version 3)
Quarter: 2022Q4

REPORT INFORMATION
  Report Type: Spontaneous
  Country: US (occurrence: US)
  Receive Date: 20201111
  Receipt Date: 20221109
  Transmission Date: 20230112
  Serious: No
  Sender: FDA-Public Use
  Company Number: US-SA-2019SA071863

PATIENT
  Age: 26 Year
  Sex: Male
  Weight: 107.1 kg

DRUGS (4)
  1. CEREZYME [Suspect]
     Active Substance: IMIGLUCERASE
     Indication: Gaucher^s disease
     Dosage: 8000 U (UNITS), QOW
     Route: 041
     Dates: start: 20140304
  2. CEREZYME [Suspect]
     Active Substance: IMIGLUCERASE
     Dosage: 8000 U, QOW
     Route: 041
     Dates: start: 2015
  3. CEREZYME [Suspect]
     Active Substance: IMIGLUCERASE
     Dosage: 8000 U, QOW
     Route: 041
     Dates: start: 20160322
  4. CEREZYME [Suspect]
     Active Substance: IMIGLUCERASE
     Dosage: 700 IU, QOW
     Route: 042
     Dates: start: 20210915

REACTIONS (2)
  - Weight decreased [Unknown]
  - Intentional dose omission [Unknown]
